FAERS Safety Report 9256433 (Version 1)
Quarter: 2013Q2

REPORT INFORMATION
  Report Type: Spontaneous
  Country: US (occurrence: US)
  Receive Date: 20130426
  Receipt Date: 20130426
  Transmission Date: 20140414
  Serious: Yes (Other)
  Sender: FDA-Public Use
  Company Number: US-AMGEN-USASP2013028429

PATIENT
  Age: 63 Year
  Sex: Female

DRUGS (1)
  1. ENBREL [Suspect]
     Indication: RHEUMATOID ARTHRITIS
     Dosage: UNK UNK, QWK
     Dates: start: 20120501, end: 201209

REACTIONS (4)
  - Vaginal haemorrhage [Recovered/Resolved]
  - Uterine cyst [Recovered/Resolved]
  - Depressed mood [Not Recovered/Not Resolved]
  - Arthralgia [Not Recovered/Not Resolved]
